FAERS Safety Report 15765085 (Version 1)
Quarter: 2018Q4

REPORT INFORMATION
  Report Type: Spontaneous
  Country: US (occurrence: US)
  Receive Date: 20181226
  Receipt Date: 20181226
  Transmission Date: 20190205
  Serious: Yes (Death)
  Sender: FDA-Public Use
  Company Number: None

PATIENT
  Age: 33 Year
  Sex: Male

DRUGS (2)
  1. CANNABINOIDS [Suspect]
     Active Substance: CANNABIS SATIVA SUBSP. SATIVA FLOWERING TOP
  2. KRATOM [Suspect]
     Active Substance: MITRAGYNINE\HERBALS

REACTIONS (3)
  - Acute myocardial infarction [None]
  - Atherosclerotic plaque rupture [None]
  - Toxicity to various agents [None]

NARRATIVE: CASE EVENT DATE: 20181109
